FAERS Safety Report 25668545 (Version 6)
Quarter: 2025Q4

REPORT INFORMATION
  Report Type: Spontaneous
  Country: US (occurrence: US)
  Receive Date: 20250812
  Receipt Date: 20251024
  Transmission Date: 20260117
  Serious: Yes (Hospitalization, Other)
  Sender: IPSEN BIOPHARMACEUTICALS, INC.
  Company Number: US-IPSEN Group, Research and Development-2025-08703

PATIENT
  Age: 67 Year
  Sex: Female

DRUGS (9)
  1. IQIRVO [Suspect]
     Active Substance: ELAFIBRANOR
     Indication: Primary biliary cholangitis
     Dosage: 1 TABLET EVERY MORNING
     Route: 048
     Dates: start: 20240927
  2. URSODIOL [Concomitant]
     Active Substance: URSODIOL
  3. IBUPROFEN [Concomitant]
     Active Substance: IBUPROFEN
  4. HERBALS\TURMERIC [Concomitant]
     Active Substance: HERBALS\TURMERIC
  5. POTASSIUM CHLORIDE [Concomitant]
     Active Substance: POTASSIUM CHLORIDE
  6. LASIX [Concomitant]
     Active Substance: FUROSEMIDE
  7. ALENDRONATE SODIUM [Concomitant]
     Active Substance: ALENDRONATE SODIUM
  8. IRON [Concomitant]
     Active Substance: IRON
  9. OMEPRAZOLE [Concomitant]
     Active Substance: OMEPRAZOLE

REACTIONS (5)
  - Ammonia increased [Unknown]
  - Hepatic enzyme abnormal [Unknown]
  - Hepatic failure [Unknown]
  - Pancreatic mass [Unknown]
  - Pancreatic operation [Unknown]

NARRATIVE: CASE EVENT DATE: 20250101
